FAERS Safety Report 16707461 (Version 1)
Quarter: 2019Q3

REPORT INFORMATION
  Report Type: Spontaneous
  Country: US (occurrence: US)
  Receive Date: 20190815
  Receipt Date: 20190815
  Transmission Date: 20191004
  Serious: No
  Sender: FDA-Public Use
  Company Number: US-PFIZER INC-2019285812

PATIENT
  Age: 82 Year
  Sex: Male
  Weight: 98.88 kg

DRUGS (1)
  1. ADVIL [Suspect]
     Active Substance: IBUPROFEN
     Indication: HERPES ZOSTER
     Dosage: UNK, 2X/DAY (EVERY 12 HOURS)

REACTIONS (1)
  - Drug effective for unapproved indication [Unknown]
